FAERS Safety Report 10621661 (Version 2)
Quarter: 2014Q4

REPORT INFORMATION
  Report Type: Spontaneous
  Country: US (occurrence: US)
  Receive Date: 20141203
  Receipt Date: 20141208
  Transmission Date: 20150529
  Serious: Yes (Hospitalization, Other)
  Sender: FDA-Public Use
  Company Number: US-UCBSA-2014019883

PATIENT
  Age: 27 Year
  Sex: Male

DRUGS (8)
  1. SODIUM VALPROATE [Concomitant]
     Active Substance: VALPROATE SODIUM
     Indication: COMPLEX PARTIAL SEIZURES
     Dosage: 400 MG, 2X/DAY (BID)
     Route: 048
     Dates: start: 20121021, end: 20141107
  2. LEVETIRACETAM. [Suspect]
     Active Substance: LEVETIRACETAM
     Dosage: 1500 MG, 2X/DAY (BID)
     Route: 048
     Dates: start: 20141111
  3. PERAMPANEL [Suspect]
     Active Substance: PERAMPANEL
     Dosage: 2 MG, 5X/DAY
     Route: 048
     Dates: end: 20141031
  4. SODIUM VALPROATE [Concomitant]
     Active Substance: VALPROATE SODIUM
     Dosage: 400 MG, 2X/DAY (BID)
     Route: 048
     Dates: start: 20141111
  5. PERAMPANEL [Suspect]
     Active Substance: PERAMPANEL
     Indication: PARTIAL SEIZURES
     Dosage: 2 MG, 6X/DAY, CORE
     Route: 048
  6. LEVETIRACETAM. [Suspect]
     Active Substance: LEVETIRACETAM
     Indication: COMPLEX PARTIAL SEIZURES
     Dosage: 1500 MG, 2X/DAY (BID)
     Route: 048
     Dates: start: 20130519, end: 20141107
  7. PERAMPANEL [Suspect]
     Active Substance: PERAMPANEL
     Dosage: 2 MG, 4X/DAY (QID)
     Route: 048
     Dates: start: 20141111
  8. PERAMPANEL [Suspect]
     Active Substance: PERAMPANEL
     Dosage: 2 MG, 6X/DAY, CONVERSION AND EXTENSION
     Route: 048

REACTIONS (2)
  - Status epilepticus [Recovered/Resolved]
  - Dizziness [Not Recovered/Not Resolved]

NARRATIVE: CASE EVENT DATE: 20140819
